FAERS Safety Report 6637425-X (Version None)
Quarter: 2010Q1

REPORT INFORMATION
  Report Type: 
  Country: None (occurrence: None)
  Receive Date: 20100311
  Receipt Date: 20100224
  Transmission Date: 20100710
  Serious: Yes (Death, Hospitalization)
  Sender: FDA-Public Use
  Company Number: 2010AL000044

PATIENT
  Age: 80 Year
  Sex: Male

DRUGS (10)
  1. PRALATREXATE (PRALATREXATE) [Suspect]
     Indication: BLADDER CANCER
     Dosage: 190 MG/M**2;QOW;IV
     Route: 042
     Dates: start: 20091119, end: 20100121
  2. LOPERAMIDE [Concomitant]
  3. TRIMEBUTINE [Concomitant]
  4. PHLOROGLUCINOL [Concomitant]
  5. SMECTA /00837601/ [Concomitant]
  6. TAHOR [Concomitant]
  7. CLOPIDOGREL [Concomitant]
  8. ATHYMIL [Concomitant]
  9. ACETBUTOLOL [Concomitant]
  10. PREV MEDS [Concomitant]

REACTIONS (9)
  - CANDIDIASIS [None]
  - DEHYDRATION [None]
  - DIARRHOEA [None]
  - GENERAL PHYSICAL HEALTH DETERIORATION [None]
  - HEPATIC NEOPLASM [None]
  - LUNG NEOPLASM [None]
  - PNEUMONIA [None]
  - PULMONARY OEDEMA [None]
  - WEIGHT DECREASED [None]
